FAERS Safety Report 26034354 (Version 1)
Quarter: 2025Q4

REPORT INFORMATION
  Report Type: Spontaneous
  Country: US (occurrence: None)
  Receive Date: 20251111
  Receipt Date: 20251111
  Transmission Date: 20260118
  Serious: Yes (Hospitalization)
  Sender: FDA-CTU
  Company Number: None

PATIENT
  Age: 81 Year
  Sex: Male

DRUGS (1)
  1. LENALIDOMIDE [Suspect]
     Active Substance: LENALIDOMIDE
     Indication: Plasma cell myeloma
     Dosage: 20MG QD ORAL ?
     Route: 048
     Dates: start: 20230710

REACTIONS (2)
  - Upper respiratory tract infection [None]
  - White blood cell count decreased [None]

NARRATIVE: CASE EVENT DATE: 20251103
